FAERS Safety Report 4957618-7 (Version None)
Quarter: 2006Q1

REPORT INFORMATION
  Report Type: 
  Country: None (occurrence: None)
  Receive Date: 20060324
  Receipt Date: 20060310
  Transmission Date: 20060701
  Serious: Yes (Death, Hospitalization, Other)
  Sender: FDA-Public Use
  Company Number: 430043M05USA

PATIENT
  Age: 58 Year
  Sex: Male
  Weight: 79.3795 kg

DRUGS (2)
  1. NOVANTRONE [Suspect]
     Indication: SECONDARY PROGRESSIVE MULTIPLE SCLEROSIS
     Dosage: 148 MG
     Dates: start: 20030501, end: 20050401
  2. INTERFERON BETA [Concomitant]

REACTIONS (13)
  - ACUTE MYELOID LEUKAEMIA [None]
  - ANAEMIA MACROCYTIC [None]
  - DISEASE RECURRENCE [None]
  - FEBRILE NEUTROPENIA [None]
  - HAEMODIALYSIS [None]
  - HAEMORRHAGE INTRACRANIAL [None]
  - INTRACRANIAL HAEMATOMA [None]
  - MENTAL STATUS CHANGES [None]
  - PNEUMONIA [None]
  - RENAL FAILURE ACUTE [None]
  - RESPIRATORY FAILURE [None]
  - SUBARACHNOID HAEMORRHAGE [None]
  - THROMBOCYTOPENIA [None]
